FAERS Safety Report 8518148-9 (Version None)
Quarter: 2012Q3

REPORT INFORMATION
  Report Type: 
  Country: None (occurrence: None)
  Receive Date: 20120718
  Receipt Date: 20111005
  Transmission Date: 20120928
  Serious: No
  Sender: FDA-Public Use
  Company Number: US-BRISTOL-MYERS SQUIBB COMPANY-16134934

PATIENT
  Age: 61 Year
  Sex: Male
  Weight: 93 kg

DRUGS (3)
  1. WARFARIN SODIUM [Suspect]
     Indication: THROMBOSIS
  2. COUMADIN [Suspect]
     Indication: THROMBOSIS
  3. LOVENOX [Suspect]
     Dosage: 1DF=1 INJ
     Dates: end: 20110930

REACTIONS (1)
  - PROTHROMBIN TIME RATIO ABNORMAL [None]
